FAERS Safety Report 6454870-6 (Version None)
Quarter: 2009Q4

REPORT INFORMATION
  Report Type: 
  Country: None (occurrence: None)
  Receive Date: 20091124
  Receipt Date: 20091118
  Transmission Date: 20100525
  Serious: Yes (Death)
  Sender: FDA-Public Use
  Company Number: US-GENENTECH-294649

PATIENT
  Age: 49 Year
  Sex: Male

DRUGS (2)
  1. AVASTIN [Suspect]
     Indication: GASTRIC CANCER
  2. CONCOMITANT DRUGS [Concomitant]
     Indication: GASTRIC CANCER

REACTIONS (1)
  - DEATH [None]
